FAERS Safety Report 5703398-7 (Version None)
Quarter: 2008Q2

REPORT INFORMATION
  Report Type: 
  Country: None (occurrence: None)
  Receive Date: 20080411
  Receipt Date: 20080408
  Transmission Date: 20081010
  Serious: Yes (Life-Threatening, Hospitalization, Other)
  Sender: FDA-Public Use
  Company Number: IT-ABBOTT-06P-083-0332230-00

PATIENT
  Sex: Female
  Weight: 53 kg

DRUGS (9)
  1. HUMIRA [Suspect]
     Indication: RHEUMATOID ARTHRITIS
     Route: 058
     Dates: start: 20050606, end: 20060411
  2. PREDNISONE [Concomitant]
     Indication: RHEUMATOID ARTHRITIS
     Dates: start: 20050628
  3. METHOTREXATE [Concomitant]
     Indication: RHEUMATOID ARTHRITIS
     Dates: start: 20060328
  4. SULFASALAZINE [Concomitant]
     Indication: RHEUMATOID ARTHRITIS
     Dates: start: 20050628, end: 20060424
  5. ORUDIS R [Concomitant]
     Indication: RHEUMATOID ARTHRITIS
     Dates: start: 20050301, end: 20050926
  6. ORUDIS R [Concomitant]
     Dates: start: 20060328, end: 20060424
  7. OMEPRAZOLE [Concomitant]
     Indication: PROPHYLAXIS AGAINST GASTROINTESTINAL ULCER
     Dates: start: 20050301
  8. NAPROXEN [Concomitant]
     Indication: RHEUMATOID ARTHRITIS
     Dates: start: 20050927, end: 20060314
  9. ETORICOXIB [Concomitant]
     Indication: RHEUMATOID ARTHRITIS
     Dates: start: 20060315, end: 20060327

REACTIONS (7)
  - ABDOMINAL PAIN [None]
  - DIVERTICULUM [None]
  - HEPATOTOXICITY [None]
  - INTESTINAL PERFORATION [None]
  - PERITONITIS [None]
  - RASH MACULO-PAPULAR [None]
  - TUBERCULOSIS [None]
